FAERS Safety Report 21538867 (Version 1)
Quarter: 2022Q4

REPORT INFORMATION
  Report Type: Other
  Country: CA (occurrence: CA)
  Receive Date: 20221102
  Receipt Date: 20221102
  Transmission Date: 20230113
  Serious: Yes (Life-Threatening, Hospitalization, Other)
  Sender: FDA-Public Use
  Company Number: CA-LUPIN PHARMACEUTICALS INC.-2022-12812

PATIENT
  Age: 67 Year
  Sex: Male

DRUGS (1)
  1. CEPHALEXIN [Suspect]
     Active Substance: CEPHALEXIN
     Indication: Cellulitis
     Dosage: UNK
     Route: 065

REACTIONS (4)
  - Clostridium colitis [Unknown]
  - Colectomy [Unknown]
  - Colitis [Unknown]
  - Clostridium test positive [Unknown]
